FAERS Safety Report 5343687-1 (Version None)
Quarter: 2007Q2

REPORT INFORMATION
  Report Type: 
  Country: None (occurrence: None)
  Receive Date: 20070531
  Receipt Date: 20070515
  Transmission Date: 20071010
  Serious: Yes (Hospitalization)
  Sender: FDA-Public Use
  Company Number: ALK_00229_2007

PATIENT
  Sex: Male
  Weight: 65.7716 kg

DRUGS (6)
  1. VIVITROL [Suspect]
     Indication: ALCOHOLISM
     Dosage: 380 MG 1X/MONTH INTRAMUSCULAR
     Route: 030
     Dates: start: 20070413
  2. DIAZEPAM [Concomitant]
  3. WELLBUTRIN [Concomitant]
  4. HYDROCODONE BITARTRATE [Concomitant]
  5. METHADONE HCL [Concomitant]
  6. ZOLOFT [Concomitant]

REACTIONS (21)
  - ABDOMINAL PAIN [None]
  - ARTHRALGIA [None]
  - BONE PAIN [None]
  - COMA [None]
  - CONSTIPATION [None]
  - CONVULSION [None]
  - DIARRHOEA [None]
  - DRUG INEFFECTIVE [None]
  - DYSPNOEA [None]
  - FALL [None]
  - GAIT DISTURBANCE [None]
  - HAEMORRHOIDS [None]
  - HEADACHE [None]
  - MEMORY IMPAIRMENT [None]
  - MUSCLE ATROPHY [None]
  - MUSCULOSKELETAL STIFFNESS [None]
  - PNEUMONIA [None]
  - TACHYCARDIA [None]
  - TREMOR [None]
  - VISION BLURRED [None]
  - VOMITING [None]
